FAERS Safety Report 8463320-X (Version None)
Quarter: 2012Q2

REPORT INFORMATION
  Report Type: 
  Country: None (occurrence: None)
  Receive Date: 20120625
  Receipt Date: 20120613
  Transmission Date: 20120825
  Serious: Yes (Hospitalization)
  Sender: FDA-Public Use
  Company Number: US-ACTELION-A-CH2012-67635

PATIENT
  Age: 19 Year
  Sex: Female

DRUGS (5)
  1. PREDNISONE [Concomitant]
  2. TRACLEER [Suspect]
     Indication: RAYNAUD'S PHENOMENON
     Dosage: UNK
     Route: 048
  3. SILDENAFIL [Concomitant]
  4. RITUXIMAB [Concomitant]
  5. AMLODIPINE [Concomitant]

REACTIONS (2)
  - SKIN ULCER [None]
  - PAIN IN EXTREMITY [None]
